FAERS Safety Report 10256753 (Version 1)
Quarter: 2014Q2

REPORT INFORMATION
  Report Type: Spontaneous
  Country: US (occurrence: US)
  Receive Date: 20140624
  Receipt Date: 20140624
  Transmission Date: 20141212
  Serious: No
  Sender: FDA-Public Use
  Company Number: US-009507513-1406USA007239

PATIENT
  Sex: Female
  Weight: 129.71 kg

DRUGS (2)
  1. NEXPLANON [Suspect]
     Indication: CONTRACEPTION
     Dosage: UNK
     Route: 059
     Dates: start: 20120430, end: 20131122
  2. LISINOPRIL [Concomitant]
     Route: 048

REACTIONS (1)
  - Weight increased [Unknown]
